FAERS Safety Report 17904167 (Version 1)
Quarter: 2020Q2

REPORT INFORMATION
  Report Type: Spontaneous
  Country: US (occurrence: US)
  Receive Date: 20200617
  Receipt Date: 20200617
  Transmission Date: 20200714
  Serious: No
  Sender: FDA-Public Use
  Company Number: US-AUROBINDO-AUR-APL-2020-000067

PATIENT
  Age: 82 Year
  Sex: Male
  Weight: 86 kg

DRUGS (2)
  1. CIPROFLOXACIN TABLETS USP 500 MG [Suspect]
     Active Substance: CIPROFLOXACIN
     Indication: KIDNEY INFECTION
     Dosage: 1 DOSAGE FORM, ONCE A DAY AT 4 CLOCK
     Route: 065
     Dates: start: 20191224, end: 20191225
  2. VALSARTAN. [Concomitant]
     Active Substance: VALSARTAN
     Indication: PRODUCT USED FOR UNKNOWN INDICATION
     Dosage: 160 MILLIGRAM, ONCE A DAY
     Route: 065

REACTIONS (2)
  - Epistaxis [Recovered/Resolved]
  - Paraesthesia [Recovered/Resolved]

NARRATIVE: CASE EVENT DATE: 20191225
